FAERS Safety Report 12602859 (Version 1)
Quarter: 2016Q3

REPORT INFORMATION
  Report Type: Spontaneous
  Country: US (occurrence: US)
  Receive Date: 20160728
  Receipt Date: 20160728
  Transmission Date: 20161109
  Serious: Yes (Other)
  Sender: FDA-Public Use
  Company Number: US-PFIZER INC-2016357169

PATIENT
  Age: 74 Year
  Sex: Male
  Weight: 72.56 kg

DRUGS (6)
  1. ASPIRIN. [Concomitant]
     Active Substance: ASPIRIN
     Dosage: 81 MG, 1X/DAY
     Route: 048
  2. METOPROLOL. [Concomitant]
     Active Substance: METOPROLOL
     Dosage: 25 MG, 2X/DAY
     Route: 048
  3. NEXIUM [Concomitant]
     Active Substance: ESOMEPRAZOLE MAGNESIUM
     Dosage: 20 MG, DAILY
     Route: 048
  4. LYRICA [Suspect]
     Active Substance: PREGABALIN
     Indication: INSOMNIA
     Dosage: 150 MG, (EVERY HOUR OF SLEEP)
     Route: 048
  5. LYRICA [Suspect]
     Active Substance: PREGABALIN
     Indication: NEUROPATHY PERIPHERAL
     Dosage: 300 MG, (EVERY HOUR OF SLEEP)
     Route: 048
  6. SUPER B COMPLEX [Concomitant]
     Active Substance: CYANOCOBALAMIN\DEXPANTHENOL\NIACINAMIDE\PYRIDOXINE HYDROCHLORIDE\RIBOFLAVIN 5^-PHOSPHATE SODIUM\THIAMINE HYDROCHLORIDE\VITAMIN B COMPLEX
     Dosage: UNK

REACTIONS (23)
  - Fatigue [Unknown]
  - Vision blurred [Unknown]
  - Sleep apnoea syndrome [Unknown]
  - Decreased vibratory sense [Unknown]
  - Intentional product use issue [Unknown]
  - Condition aggravated [Unknown]
  - Pain in extremity [Unknown]
  - Hypoaesthesia [Unknown]
  - Stress [Unknown]
  - Nasal congestion [Unknown]
  - Gastrooesophageal reflux disease [Unknown]
  - Contusion [Unknown]
  - Depression [Unknown]
  - Pain [Unknown]
  - Disturbance in attention [Unknown]
  - Hypoacusis [Unknown]
  - Gait disturbance [Unknown]
  - Paraesthesia [Unknown]
  - Muscular weakness [Unknown]
  - Polyneuropathy [Unknown]
  - Dyspepsia [Unknown]
  - Anxiety [Unknown]
  - Sleep disorder [Unknown]
